FAERS Safety Report 4339067-8 (Version None)
Quarter: 2004Q2

REPORT INFORMATION
  Report Type: 
  Country: None (occurrence: None)
  Receive Date: 20040412
  Receipt Date: 20040402
  Transmission Date: 20050107
  Serious: Yes (Hospitalization)
  Sender: FDA-Public Use
  Company Number: 04P-163-0255979-00

PATIENT
  Age: 53 Year
  Sex: Female
  Weight: 64.7 kg

DRUGS (13)
  1. DILAUDID [Suspect]
     Indication: CANCER PAIN
     Dosage: SEE IMAGE
     Dates: start: 20040201, end: 20040201
  2. DILAUDID [Suspect]
     Indication: CANCER PAIN
     Dosage: SEE IMAGE
     Dates: start: 20040201, end: 20040228
  3. LORAZEPAM [Suspect]
     Dosage: 1 MG, PER ORAL OR INTRAVENOUS
     Route: 048
     Dates: end: 20040201
  4. BUPIVACAINE [Concomitant]
  5. FENTANYL CITRATE [Concomitant]
  6. DEXAMETHASONE [Concomitant]
  7. DOCUSATE SODIUM [Concomitant]
  8. BISACODYL [Concomitant]
  9. METOCLOPRAMIDE [Concomitant]
  10. ONDANSETRON ODT [Concomitant]
  11. OLANZAPINE [Concomitant]
  12. ROFECOXIB [Concomitant]
  13. DONEPEZIL HYDROCHLORIDE [Concomitant]

REACTIONS (16)
  - ABDOMINAL PAIN [None]
  - ASTERIXIS [None]
  - BLADDER DISORDER [None]
  - BRAIN MASS [None]
  - DEHYDRATION [None]
  - DELIRIUM [None]
  - DELUSION [None]
  - HALLUCINATION [None]
  - LIVER DISORDER [None]
  - METABOLIC DISORDER [None]
  - NAUSEA [None]
  - RESPIRATORY FAILURE [None]
  - SEDATION [None]
  - TREMOR [None]
  - URETERAL STENT INSERTION [None]
  - VOMITING [None]
